FAERS Safety Report 11176536 (Version 1)
Quarter: 2015Q2

REPORT INFORMATION
  Report Type: Spontaneous
  Country: GB (occurrence: GB)
  Receive Date: 20150610
  Receipt Date: 20150610
  Transmission Date: 20150821
  Serious: Yes (Other)
  Sender: FDA-Public Use
  Company Number: GB-AMGEN-GBRSP2015029250

PATIENT
  Age: 47 Year
  Sex: Female

DRUGS (1)
  1. ENBREL [Suspect]
     Active Substance: ETANERCEPT
     Indication: ANKYLOSING SPONDYLITIS
     Dosage: 50 MG, UNK
     Route: 065

REACTIONS (7)
  - Injection site erythema [Unknown]
  - Ankylosing spondylitis [Unknown]
  - Disease recurrence [Unknown]
  - Cough [Unknown]
  - Injection site reaction [Unknown]
  - Tooth loss [Unknown]
  - Loose tooth [Unknown]
